FAERS Safety Report 7785273-X (Version None)
Quarter: 2011Q3

REPORT INFORMATION
  Report Type: 
  Country: None (occurrence: None)
  Receive Date: 20110929
  Receipt Date: 20110919
  Transmission Date: 20111222
  Serious: Yes (Hospitalization)
  Sender: FDA-Public Use
  Company Number: US-JNJFOC-20110202034

PATIENT
  Sex: Female
  Weight: 10.9 kg

DRUGS (12)
  1. ACETAMINOPHEN [Concomitant]
  2. MUPIROCIN [Concomitant]
  3. REMICADE [Suspect]
     Indication: CROHN'S DISEASE
     Route: 042
     Dates: start: 20090905, end: 20091015
  4. ANTIBIOTICS [Concomitant]
  5. ALBUTEROL [Concomitant]
  6. LEUKINE [Concomitant]
     Dates: start: 20100222, end: 20100710
  7. FERROUS SULFATE TAB [Concomitant]
  8. LEUKINE [Concomitant]
     Dates: start: 20100101, end: 20110308
  9. CEFEPIME [Concomitant]
  10. METHOTREXATE [Concomitant]
  11. PREVACID [Concomitant]
  12. TPN [Concomitant]

REACTIONS (2)
  - DEVICE RELATED INFECTION [None]
  - URINARY TRACT INFECTION [None]
